FAERS Safety Report 24280910 (Version 2)
Quarter: 2024Q3

REPORT INFORMATION
  Report Type: Spontaneous
  Country: TR (occurrence: TR)
  Receive Date: 20240904
  Receipt Date: 20240912
  Transmission Date: 20241017
  Serious: Yes (Life-Threatening, Hospitalization)
  Sender: ALKEM
  Company Number: TR-ALKEM LABORATORIES LIMITED-TR-ALKEM-2024-20261

PATIENT
  Age: 6 Year
  Sex: Male

DRUGS (6)
  1. CLOBAZAM [Interacting]
     Active Substance: CLOBAZAM
     Indication: Epileptic encephalopathy
     Dosage: 0.75 MILLIGRAM/KILOGRAM, QD
     Route: 065
  2. CLOBAZAM [Interacting]
     Active Substance: CLOBAZAM
     Dosage: 0.5 MILLIGRAM/KILOGRAM, QD
     Route: 065
  3. MEROPENEM [Interacting]
     Active Substance: MEROPENEM
     Indication: Pneumonia
     Dosage: UNK
     Route: 065
  4. BACLOFEN [Concomitant]
     Active Substance: BACLOFEN
     Indication: Epileptic encephalopathy
     Dosage: 1.2 MILLIGRAM/KILOGRAM, QD
     Route: 065
  5. SULTHIAME [Concomitant]
     Active Substance: SULTHIAME
     Indication: Epileptic encephalopathy
     Dosage: 15 MILLIGRAM/KILOGRAM, QD
     Route: 065
  6. VIGABATRIN [Concomitant]
     Active Substance: VIGABATRIN
     Indication: Epileptic encephalopathy
     Dosage: 38 MILLIGRAM/KILOGRAM, QD
     Route: 065

REACTIONS (5)
  - Respiratory distress [Unknown]
  - Drug level increased [Unknown]
  - Drug interaction [Unknown]
  - Eye disorder [Unknown]
  - Somnolence [Unknown]
